FAERS Safety Report 25483986 (Version 2)
Quarter: 2025Q3

REPORT INFORMATION
  Report Type: Spontaneous
  Country: JP (occurrence: JP)
  Receive Date: 20250626
  Receipt Date: 20250821
  Transmission Date: 20251021
  Serious: Yes (Other)
  Sender: PFIZER
  Company Number: JP-PFIZER INC-PV202500074913

PATIENT
  Age: 76 Year
  Sex: Male

DRUGS (1)
  1. TOFACITINIB CITRATE [Suspect]
     Active Substance: TOFACITINIB CITRATE
     Indication: Rheumatoid arthritis

REACTIONS (3)
  - Bowen^s disease [Unknown]
  - Papilloma viral infection [Not Recovered/Not Resolved]
  - Skin papilloma [Not Recovered/Not Resolved]
